FAERS Safety Report 14260284 (Version 1)
Quarter: 2017Q4

REPORT INFORMATION
  Report Type: Spontaneous
  Country: US (occurrence: US)
  Receive Date: 20171207
  Receipt Date: 20171207
  Transmission Date: 20180321
  Serious: Yes (Other)
  Sender: FDA-Public Use
  Company Number: US-009507513-1712USA002628

PATIENT
  Age: 89 Year
  Sex: Female

DRUGS (1)
  1. TRUSOPT [Suspect]
     Active Substance: DORZOLAMIDE HYDROCHLORIDE
     Indication: INTRAOCULAR PRESSURE INCREASED
     Dosage: UNK
     Route: 047
     Dates: end: 201711

REACTIONS (3)
  - Intraocular pressure increased [Unknown]
  - Macular degeneration [Unknown]
  - Drug dose omission [Unknown]

NARRATIVE: CASE EVENT DATE: 201711
